FAERS Safety Report 6788842-9 (Version None)
Quarter: 2010Q2

REPORT INFORMATION
  Report Type: 
  Country: None (occurrence: None)
  Receive Date: 20100623
  Receipt Date: 20080702
  Transmission Date: 20101027
  Serious: Yes (Hospitalization, Other)
  Sender: FDA-Public Use
  Company Number: US-PFIZER INC-2008031274

PATIENT
  Sex: Male
  Weight: 72 kg

DRUGS (4)
  1. SUTENT [Suspect]
     Indication: RENAL CELL CARCINOMA
     Route: 048
     Dates: start: 20080302
  2. TAMSULOSIN HCL [Concomitant]
     Dates: start: 20030101
  3. VITAMINS [Concomitant]
     Dates: start: 20030101
  4. ALL OTHER THERAPEUTIC PRODUCTS [Concomitant]
     Dates: start: 20030101

REACTIONS (7)
  - ABDOMINAL PAIN [None]
  - DRY SKIN [None]
  - ERYTHEMA [None]
  - GASTRIC ULCER [None]
  - OEDEMA PERIPHERAL [None]
  - PAIN IN EXTREMITY [None]
  - PARONYCHIA [None]
